FAERS Safety Report 8133199-4 (Version None)
Quarter: 2012Q1

REPORT INFORMATION
  Report Type: 
  Country: None (occurrence: None)
  Receive Date: 20120213
  Receipt Date: 20120203
  Transmission Date: 20120608
  Serious: Yes (Other)
  Sender: FDA-Public Use
  Company Number: PHHY2010JP68708

PATIENT
  Age: 61 Year
  Sex: Female

DRUGS (2)
  1. ZOMETA [Suspect]
     Indication: METASTASES TO BONE
     Route: 041
     Dates: start: 20070322, end: 20090728
  2. CHEMOTHERAPEUTICS NOS [Suspect]

REACTIONS (13)
  - GINGIVAL ERYTHEMA [None]
  - SINUS HEADACHE [None]
  - OSTEOMYELITIS [None]
  - GINGIVAL SWELLING [None]
  - NASAL CONGESTION [None]
  - STRESS [None]
  - EXPOSED BONE IN JAW [None]
  - IMPAIRED HEALING [None]
  - PRIMARY SEQUESTRUM [None]
  - SINUSITIS [None]
  - PAIN IN JAW [None]
  - UPPER-AIRWAY COUGH SYNDROME [None]
  - OSTEONECROSIS OF JAW [None]
